FAERS Safety Report 9837586 (Version 1)
Quarter: 2013Q4

REPORT INFORMATION
  Report Type: Spontaneous
  Country: US (occurrence: None)
  Receive Date: 20131125
  Receipt Date: 20131125
  Transmission Date: 20140711
  Serious: Yes (Other)
  Sender: FDA-Public Use
  Company Number: FK201302551

PATIENT
  Age: 62 Year
  Sex: Female

DRUGS (3)
  1. FLUOROURACIL INJECTION, USP (FLUOROURACIL) (FLUOROURACIL) [Suspect]
  2. IRINOTECAN (IRINOTECAN) (IRINOTECAN) [Suspect]
  3. ROLAPITANT [Suspect]
     Indication: PROPHYLAXIS OF NAUSEA AND VOMITING

REACTIONS (1)
  - Neutrophil count decreased [None]
